FAERS Safety Report 7603579-1 (Version None)
Quarter: 2011Q2

REPORT INFORMATION
  Report Type: 
  Country: None (occurrence: None)
  Receive Date: 20110629
  Receipt Date: 20110614
  Transmission Date: 20111010
  Serious: Yes (Death)
  Sender: FDA-Public Use
  Company Number: B0727730A

PATIENT

DRUGS (4)
  1. CYCLOPHOSPHAMIDE [Suspect]
  2. MYLERAN [Suspect]
  3. MELPHALAN INJECTION (GENERIC) (MELPHALAN) [Suspect]
     Indication: ACUTE MYELOID LEUKAEMIA
     Dosage: 200 MG/M2 / SINGLE DOSE / INTRAVENOUS
     Route: 042
  4. ETOPOSIDE [Suspect]

REACTIONS (2)
  - FEBRILE NEUTROPENIA [None]
  - CEREBRAL HAEMORRHAGE [None]
